FAERS Safety Report 20676240 (Version 2)
Quarter: 2022Q2

REPORT INFORMATION
  Report Type: Spontaneous
  Country: US (occurrence: US)
  Receive Date: 20220405
  Receipt Date: 20220519
  Transmission Date: 20220720
  Serious: No
  Sender: FDA-Public Use
  Company Number: US-PFIZER INC-202101700865

PATIENT
  Age: 64 Year
  Sex: Female

DRUGS (13)
  1. IBRANCE [Suspect]
     Active Substance: PALBOCICLIB
     Dosage: 125 MG, (DAILY FOR 21 DAYS THEN OFF FOR 7 DAYS)
     Route: 048
  2. IBRANCE [Suspect]
     Active Substance: PALBOCICLIB
     Dosage: 125 MG, CYCLIC (DAYS 1 TO 21, FOLLOWED BY 7 DAYS OF)
  3. METFORMIN HYDROCHLORIDE [Concomitant]
     Active Substance: METFORMIN HYDROCHLORIDE
  4. NOVOLIN 70/30 [Concomitant]
     Active Substance: INSULIN HUMAN
     Dosage: UNK
  5. FERRIC SULFATE [Concomitant]
     Active Substance: FERRIC SULFATE
     Dosage: UNK
  6. LETROZOLE [Concomitant]
     Active Substance: LETROZOLE
     Dosage: UNK
  7. LOVASTATIN [Concomitant]
     Active Substance: LOVASTATIN
     Dosage: UNK
  8. AMLODIPINE BESYLATE [Concomitant]
     Active Substance: AMLODIPINE BESYLATE
     Dosage: UNK
  9. LISINOPRIL [Concomitant]
     Active Substance: LISINOPRIL
     Dosage: UNK
  10. ASPIRIN [Concomitant]
     Active Substance: ASPIRIN
     Dosage: UNK
  11. VITAMIN D2 OLEOSA [Concomitant]
     Dosage: UNK
  12. CALCIUM CARBONATE\ERGOCALCIFEROL [Concomitant]
     Active Substance: CALCIUM CARBONATE\ERGOCALCIFEROL
     Dosage: UNK
  13. VITAMIN D3 [Concomitant]
     Active Substance: CHOLECALCIFEROL
     Dosage: UNK

REACTIONS (3)
  - Therapeutic response unexpected [Unknown]
  - Product dose omission issue [Unknown]
  - Malaise [Unknown]
